FAERS Safety Report 21654276 (Version 1)
Quarter: 2022Q4

REPORT INFORMATION
  Report Type: Spontaneous
  Country: CN (occurrence: CN)
  Receive Date: 20221129
  Receipt Date: 20221129
  Transmission Date: 20230112
  Serious: Yes (Other)
  Sender: FDA-Public Use
  Company Number: CN-SUN PHARMACEUTICAL INDUSTRIES LTD-2022R1-366039

PATIENT
  Age: 65 Year
  Sex: Female

DRUGS (6)
  1. DULOXETINE [Suspect]
     Active Substance: DULOXETINE
     Indication: Somatic symptom disorder
     Dosage: 40 MILLIGRAM, BID
     Route: 065
  2. LORAZEPAM [Suspect]
     Active Substance: LORAZEPAM
     Indication: Somatic symptom disorder
     Dosage: 1 MILLIGRAM/EVERY NIGHT
  3. AGOMELATINE [Suspect]
     Active Substance: AGOMELATINE
     Indication: Somatic symptom disorder
     Dosage: 50 MILLIGRAM/ EVERY NIGHT
     Route: 065
  4. FLUPENTIXOL\MELITRACEN [Suspect]
     Active Substance: FLUPENTIXOL\MELITRACEN
     Indication: Somatic symptom disorder
     Dosage: 10 MILLIGRAM, BID
     Route: 065
  5. BUSPIRONE [Suspect]
     Active Substance: BUSPIRONE HYDROCHLORIDE
     Indication: Somatic symptom disorder
     Dosage: 10 MILLIGRAM, BID
     Route: 065
  6. ESZOPICLONE [Suspect]
     Active Substance: ESZOPICLONE
     Indication: Somatic symptom disorder
     Dosage: 1.5 MILLIGRAM/ EVERY NIGHT
     Route: 065

REACTIONS (1)
  - Condition aggravated [Unknown]
